FAERS Safety Report 17366765 (Version 1)
Quarter: 2020Q1

REPORT INFORMATION
  Report Type: Spontaneous
  Country: US (occurrence: US)
  Receive Date: 20200204
  Receipt Date: 20200204
  Transmission Date: 20200409
  Serious: No
  Sender: FDA-Public Use
  Company Number: US-BEH-2020112324

PATIENT
  Sex: Female

DRUGS (1)
  1. PRIVIGEN [Suspect]
     Active Substance: HUMAN IMMUNOGLOBULIN G
     Indication: DERMATOMYOSITIS
     Dosage: 20 GRAM, QW
     Route: 042

REACTIONS (5)
  - Flushing [Unknown]
  - Nausea [Unknown]
  - No adverse event [Unknown]
  - Tremor [Unknown]
  - Product use in unapproved indication [Unknown]
